FAERS Safety Report 8422630-2 (Version None)
Quarter: 2012Q2

REPORT INFORMATION
  Report Type: 
  Country: None (occurrence: None)
  Receive Date: 20120608
  Receipt Date: 20120530
  Transmission Date: 20120825
  Serious: Yes (Death)
  Sender: FDA-Public Use
  Company Number: JP-ROCHE-1001793

PATIENT
  Sex: Male

DRUGS (22)
  1. ZANTAC [Concomitant]
  2. TPN ELECTROLYTES IN PLASTIC CONTAINER [Concomitant]
     Route: 051
     Dates: start: 20101222, end: 20101226
  3. ADONA [Concomitant]
     Route: 051
     Dates: start: 20101223, end: 20101224
  4. DIPRIVAN [Concomitant]
     Dates: start: 20101223, end: 20101223
  5. THIAMINE DISULFIDE [Concomitant]
     Route: 051
     Dates: start: 20101222, end: 20101226
  6. VITA CON FORTE [Concomitant]
     Route: 051
     Dates: start: 20101222, end: 20101226
  7. ELIETEN [Concomitant]
     Route: 051
     Dates: start: 20101222, end: 20101223
  8. ROCEPHIN [Concomitant]
     Route: 051
     Dates: start: 20101225, end: 20101225
  9. LASIX [Concomitant]
     Route: 051
     Dates: start: 20101225, end: 20101225
  10. GLYCEOL [Concomitant]
     Route: 041
     Dates: start: 20101223, end: 20101225
  11. TRANSAMINE CAP [Concomitant]
     Route: 051
     Dates: start: 20101223, end: 20101224
  12. ALTEPLASE [Suspect]
     Indication: THROMBOTIC CEREBRAL INFARCTION
     Route: 042
     Dates: start: 20101222, end: 20101223
  13. ROCURONIUM BROMIDE [Concomitant]
     Route: 051
     Dates: start: 20101223, end: 20101223
  14. SEVOFLURANE [Concomitant]
     Route: 051
     Dates: start: 20101223, end: 20101223
  15. PHYSIO 35 [Concomitant]
     Route: 051
     Dates: start: 20101222, end: 20101223
  16. SOLDEM [Concomitant]
     Route: 051
     Dates: start: 20101223, end: 20101224
  17. SUGAMMADEX SODIUM [Concomitant]
     Route: 051
     Dates: start: 20101223, end: 20101223
  18. LACTATED RINGER'S [Concomitant]
     Route: 051
     Dates: start: 20101222, end: 20101226
  19. EDARAVONE [Concomitant]
     Dosage: BAG
     Route: 041
     Dates: start: 20101222, end: 20101226
  20. VOLTAREN [Concomitant]
     Route: 054
     Dates: start: 20101223, end: 20101225
  21. VERAPAMIL HCL [Concomitant]
     Route: 051
     Dates: start: 20101224, end: 20101224
  22. DILTIAZEM HCL [Concomitant]
     Route: 051
     Dates: start: 20101225, end: 20101226

REACTIONS (1)
  - BRAIN OEDEMA [None]
